FAERS Safety Report 8008049-7 (Version None)
Quarter: 2011Q4

REPORT INFORMATION
  Report Type: 
  Country: None (occurrence: None)
  Receive Date: 20111227
  Receipt Date: 20111219
  Transmission Date: 20120403
  Serious: Yes (Other)
  Sender: FDA-Public Use
  Company Number: PHEH2011US011761

PATIENT
  Sex: Male

DRUGS (4)
  1. LYRICA [Concomitant]
     Dosage: 300 MG, QD
  2. MORPHINE [Concomitant]
     Dosage: 30 MG, Q12H
  3. GILENYA [Suspect]
     Indication: RELAPSING-REMITTING MULTIPLE SCLEROSIS
     Dosage: 0.5 MG, QD
     Route: 048
     Dates: start: 20110630
  4. AMITRIPTYLINE [Concomitant]
     Dosage: 2 DF, QHS

REACTIONS (2)
  - MYOCARDIAL INFARCTION [None]
  - CHEST PAIN [None]
